FAERS Safety Report 9630837 (Version 2)
Quarter: 2013Q4

REPORT INFORMATION
  Report Type: Spontaneous
  Country: US (occurrence: None)
  Receive Date: 20131016
  Receipt Date: 20131101
  Transmission Date: 20140711
  Serious: Yes (Hospitalization, Other)
  Sender: FDA-Public Use
  Company Number: AUR-APL-2013-08591

PATIENT
  Age: 24 Year
  Sex: Female

DRUGS (4)
  1. AMLODIPINE (AMLODIPINE) [Suspect]
     Indication: PRODUCT USED FOR UNKNOWN INDICATION
     Route: 048
  2. SIMVASTATIN (SIMVASTATIN) [Suspect]
     Indication: PRODUCT USED FOR UNKNOWN INDICATION
     Route: 048
  3. TRAZODONE (TRAZODONE) [Suspect]
     Indication: PRODUCT USED FOR UNKNOWN INDICATION
     Route: 048
  4. SERTRALINE (SERTRALINE) [Concomitant]

REACTIONS (11)
  - Overdose [None]
  - Diarrhoea [None]
  - Cold sweat [None]
  - Hypotension [None]
  - Metabolic acidosis [None]
  - Respiratory rate increased [None]
  - Heart rate increased [None]
  - Lung infiltration [None]
  - Renal failure [None]
  - Renal tubular necrosis [None]
  - Rhabdomyolysis [None]
